FAERS Safety Report 22126745 (Version 2)
Quarter: 2023Q1

REPORT INFORMATION
  Report Type: Spontaneous
  Country: IT (occurrence: IT)
  Receive Date: 20230322
  Receipt Date: 20230330
  Transmission Date: 20230417
  Serious: Yes (Hospitalization, Other)
  Sender: FDA-Public Use
  Company Number: IT-MLMSERVICE-20230310-4160623-1

PATIENT
  Age: 59 Year
  Sex: Female
  Weight: 60 kg

DRUGS (6)
  1. GEMCITABINE [Suspect]
     Active Substance: GEMCITABINE
     Indication: Adenocarcinoma pancreas
     Dosage: 1000 MG/M2, CYCLIC (DAYS 1, 8 AND 15 OF A 28-D CYCLE)
     Dates: start: 2020
  2. OXALIPLATIN [Suspect]
     Active Substance: OXALIPLATIN
     Indication: Pancreatic carcinoma stage IV
     Dosage: 85 MG/M2, CYCLIC
     Dates: start: 202102
  3. FLUOROURACIL [Concomitant]
     Active Substance: FLUOROURACIL
     Indication: Adenocarcinoma pancreas
     Dosage: 2400 MG/M2, CYCLIC (CONTINUOUS INFUSION FOR 44 H)
     Dates: start: 202102
  4. IRINOTECAN [Concomitant]
     Active Substance: IRINOTECAN
     Indication: Adenocarcinoma pancreas
     Dosage: 150 MG/M2, CYCLIC
     Dates: start: 202102
  5. PACLITAXEL [Concomitant]
     Active Substance: PACLITAXEL
     Indication: Adenocarcinoma pancreas
     Dosage: 125 MG/M2, CYCLIC (DAYS 1, 8 AND 15 OF A 28-D CYCLE)
     Dates: start: 2020
  6. FOLIC ACID [Concomitant]
     Active Substance: FOLIC ACID
     Indication: Adenocarcinoma pancreas
     Dosage: 200 MG/M2, CYCLIC
     Dates: start: 202102

REACTIONS (4)
  - Pelvic venous thrombosis [Unknown]
  - Deep vein thrombosis [Unknown]
  - Pulmonary embolism [Unknown]
  - Atrial thrombosis [Unknown]

NARRATIVE: CASE EVENT DATE: 20210101
